FAERS Safety Report 5505362-X (Version None)
Quarter: 2007Q4

REPORT INFORMATION
  Report Type: 
  Country: None (occurrence: None)
  Receive Date: 20071030
  Receipt Date: 20070711
  Transmission Date: 20080405
  Serious: No
  Sender: FDA-Public Use
  Company Number: 265447

PATIENT
  Age: 80 Year
  Sex: Female
  Weight: 65.8 kg

DRUGS (1)
  1. LEVEMIR [Suspect]
     Dosage: 10 IU, QD, SUBCUTANEOUS
     Route: 058

REACTIONS (1)
  - BLOOD GLUCOSE INCREASED [None]
